FAERS Safety Report 24950630 (Version 1)
Quarter: 2025Q1

REPORT INFORMATION
  Report Type: Spontaneous
  Country: US (occurrence: None)
  Receive Date: 20250207
  Receipt Date: 20250207
  Transmission Date: 20250409
  Serious: No
  Sender: FDA-CTU
  Company Number: None

PATIENT

DRUGS (1)
  1. BRIUMVI [Suspect]
     Active Substance: UBLITUXIMAB-XIIY

REACTIONS (5)
  - Tachycardia [None]
  - Bronchospasm [None]
  - Upper respiratory tract infection [None]
  - COVID-19 [None]
  - Injection related reaction [None]
